FAERS Safety Report 23495956 (Version 2)
Quarter: 2024Q2

REPORT INFORMATION
  Report Type: Report from Study
  Country: US (occurrence: None)
  Receive Date: 20240207
  Receipt Date: 20240522
  Transmission Date: 20240717
  Serious: Yes (Other)
  Sender: FDA-Public Use
  Company Number: 2024A027819

PATIENT
  Weight: 170.1 kg

DRUGS (15)
  1. TEZSPIRE [Suspect]
     Active Substance: TEZEPELUMAB-EKKO
     Route: 058
     Dates: start: 20230703
  2. ALBUTEROL SULFATE [Concomitant]
     Active Substance: ALBUTEROL SULFATE
     Dosage: 2.5 MG/3 ML (0.083 %) SOLUTION FOR NEBULIZATION
     Route: 055
     Dates: start: 20231208
  3. ALLOPURINOL [Concomitant]
     Active Substance: ALLOPURINOL
     Route: 048
     Dates: start: 20231122
  4. AMLODIPINE [Concomitant]
     Active Substance: AMLODIPINE BESYLATE
     Route: 048
     Dates: start: 20231102
  5. ATORVASTATIN [Concomitant]
     Active Substance: ATORVASTATIN
     Dosage: TAKE L TABLET BY MOUTH ONCE DAILY
     Route: 048
     Dates: start: 20231220
  6. CHANTIX [Concomitant]
     Active Substance: VARENICLINE TARTRATE
     Dosage: TAKE 1 STARTR PK(S) BY ORAL ROUTE.
     Route: 048
     Dates: start: 20240131
  7. DICLOFENAC [Concomitant]
     Active Substance: DICLOFENAC
     Dates: start: 20231214
  8. FUROSEMIDE [Concomitant]
     Active Substance: FUROSEMIDE
     Dates: start: 20231122
  9. HYDROCODONE [Concomitant]
     Active Substance: HYDROCODONE
     Dosage: TAKE 1 TABLET BY MOUTH LLI REE TIMES DAILY AS NEEDED
     Route: 048
     Dates: start: 20240113
  10. INSULIN LISPRO [Concomitant]
     Active Substance: INSULIN LISPRO
     Dosage: INJECT 20 UNITS SUBCUTANEOUSLYLLIREE TIMES DAILY BEFORE MEAL(S) AS DIRECTED
     Route: 058
     Dates: start: 20240111
  11. IPRATROPIUM [Concomitant]
     Active Substance: IPRATROPIUM
     Dosage: USE 1 AMPULE IN NEBULLZER EVERY 6 HOURS AS NEEDED
     Route: 058
     Dates: start: 20240130
  12. KETOCONAZOLE [Concomitant]
     Active Substance: KETOCONAZOLE
     Dosage: APPLY TOPICALLY TO AFFECTED AREA ONCE DAILY
     Dates: start: 20231220
  13. OZEMPIC [Concomitant]
     Active Substance: SEMAGLUTIDE
     Dosage: APPLY TOPICALLY TO AFFECTED AREA ONCE DAILY
     Dates: start: 20231220
  14. SPIRIVA [Concomitant]
     Active Substance: TIOTROPIUM BROMIDE MONOHYDRATE
     Dosage: INHALE 1 SPRAY(S) BY MOUTH ONCE DAILY
  15. SINGULAIR [Concomitant]
     Active Substance: MONTELUKAST SODIUM

REACTIONS (3)
  - Aortic stenosis [Unknown]
  - Obstructive sleep apnoea syndrome [Unknown]
  - Dyspnoea [Unknown]
